FAERS Safety Report 5847621-7 (Version None)
Quarter: 2008Q3

REPORT INFORMATION
  Report Type: 
  Country: None (occurrence: None)
  Receive Date: 20080815
  Receipt Date: 20080815
  Transmission Date: 20090109
  Serious: No
  Sender: FDA-Public Use
  Company Number: None

PATIENT
  Sex: Female
  Weight: 72.5755 kg

DRUGS (4)
  1. LAMOTRIGENE 100 MG TEVA [Suspect]
     Indication: BIPOLAR II DISORDER
     Dosage: 100 MG 2 PILLS Q.D. ORAL
     Route: 048
     Dates: start: 20080803
  2. LAMOTRIGENE 100 MG TEVA [Suspect]
     Indication: BIPOLAR II DISORDER
     Dosage: 100 MG 2 PILLS Q.D. ORAL
     Route: 048
     Dates: start: 20080804
  3. EFFEXOR XR [Concomitant]
  4. OTC ZYRTEC [Concomitant]

REACTIONS (2)
  - ADVERSE DRUG REACTION [None]
  - PHARMACEUTICAL PRODUCT COMPLAINT [None]
